FAERS Safety Report 9383033 (Version 4)
Quarter: 2013Q4

REPORT INFORMATION
  Report Type: Spontaneous
  Country: US (occurrence: US)
  Receive Date: 20130704
  Receipt Date: 20131031
  Transmission Date: 20140711
  Serious: Yes (Other)
  Sender: FDA-Public Use
  Company Number: US-AMGEN-USASP2013046590

PATIENT
  Age: 22 Year
  Sex: Female
  Weight: 53.52 kg

DRUGS (7)
  1. ENBREL [Suspect]
     Indication: RHEUMATOID ARTHRITIS
     Dosage: 50 MG, QWK
     Route: 058
     Dates: start: 2000
  2. ENBREL [Suspect]
     Indication: JUVENILE IDIOPATHIC ARTHRITIS
  3. FOLIC ACID [Concomitant]
     Dosage: 1 MG, QD
  4. B COMPLEX                          /00212701/ [Concomitant]
     Dosage: UNK UNK, QD
  5. PRENATAL VITAMINS                  /02014401/ [Concomitant]
     Dosage: UNK UNK, QD
  6. DHA [Concomitant]
     Dosage: UNK UNK, QD
  7. INFLUENZA VACCINE [Concomitant]
     Dosage: UNK

REACTIONS (1)
  - Abortion spontaneous [Recovered/Resolved]
